FAERS Safety Report 4355245-6 (Version None)
Quarter: 2004Q2

REPORT INFORMATION
  Report Type: 
  Country: None (occurrence: None)
  Receive Date: 20040504
  Receipt Date: 20040422
  Transmission Date: 20050107
  Serious: Yes (Hospitalization)
  Sender: FDA-Public Use
  Company Number: 04P-056-0258513-00

PATIENT
  Age: 64 Year
  Sex: Male

DRUGS (5)
  1. ISOPTIN [Suspect]
     Indication: ESSENTIAL HYPERTENSION
     Dosage: 240 MG, 1/2 TABLET, PER ORAL
     Route: 048
  2. IMATINIB MESILATE [Suspect]
     Indication: CHRONIC MYELOID LEUKAEMIA
     Dosage: 400 MG, PER ORAL
     Route: 048
     Dates: start: 20001015
  3. KARVEA HCT [Suspect]
     Indication: ESSENTIAL HYPERTENSION
     Dosage: 1 DOSAGE FORMS, PER ORAL
     Route: 048
  4. TRIMETAZIDINE [Suspect]
     Indication: AGE INDETERMINATE MYOCARDIAL INFARCTION
     Dosage: 20 MG, 3 IN 1 D, PER ORAL
     Route: 048
  5. NICORANDIL [Suspect]
     Indication: AGE INDETERMINATE MYOCARDIAL INFARCTION
     Dosage: 20 MG, 2 IN 1 D, PER ORAL
     Route: 048

REACTIONS (1)
  - HEMIANOPIA [None]
